FAERS Safety Report 12678905 (Version 1)
Quarter: 2016Q3

REPORT INFORMATION
  Report Type: Spontaneous
  Country: FR (occurrence: FR)
  Receive Date: 20160824
  Receipt Date: 20160824
  Transmission Date: 20161109
  Serious: Yes (Other)
  Sender: FDA-Public Use
  Company Number: FR-UCBSA-2016031273

PATIENT
  Sex: Female

DRUGS (3)
  1. KEPPRA [Suspect]
     Active Substance: LEVETIRACETAM
     Dosage: UNKNOWN GRADUAL INCREASE
     Dates: start: 2016, end: 2016
  2. KEPPRA [Suspect]
     Active Substance: LEVETIRACETAM
     Dosage: 2500 MG IN THE MORNING AND 2000 MG IN THE EVENING, 2X/DAY (BID)
     Dates: start: 2016, end: 2016
  3. KEPPRA [Suspect]
     Active Substance: LEVETIRACETAM
     Indication: EPILEPSY
     Dosage: 1500 MG, 2X/DAY (BID)

REACTIONS (7)
  - Generalised tonic-clonic seizure [Unknown]
  - Pregnancy [Unknown]
  - Premature delivery [Unknown]
  - Loss of consciousness [Unknown]
  - Head injury [Unknown]
  - Wound [Unknown]
  - Seizure [Unknown]

NARRATIVE: CASE EVENT DATE: 20151214
